FAERS Safety Report 19869786 (Version 1)
Quarter: 2021Q3

REPORT INFORMATION
  Report Type: Spontaneous
  Country: ES (occurrence: ES)
  Receive Date: 20210922
  Receipt Date: 20210922
  Transmission Date: 20211014
  Serious: Yes (Other)
  Sender: FDA-Public Use
  Company Number: ES-MYLANLABS-2021M1064094

PATIENT
  Age: 16 Year
  Sex: Male

DRUGS (2)
  1. FUROSEMIDE. [Suspect]
     Active Substance: FUROSEMIDE
     Indication: PRODUCT USED FOR UNKNOWN INDICATION
     Dosage: UNK
     Route: 042
     Dates: start: 20210415, end: 20210415
  2. NOREPINEFRINA /00127501/ [Interacting]
     Active Substance: NOREPINEPHRINE
     Indication: PRODUCT USED FOR UNKNOWN INDICATION
     Dosage: UNK
     Route: 042
     Dates: start: 20210415, end: 20210415

REACTIONS (4)
  - Drug interaction [Unknown]
  - Hypotension [Recovered/Resolved]
  - Product use issue [Recovered/Resolved]
  - Product deposit [Recovered/Resolved]

NARRATIVE: CASE EVENT DATE: 20210415
